FAERS Safety Report 22538603 (Version 1)
Quarter: 2023Q2

REPORT INFORMATION
  Report Type: Spontaneous
  Country: CA (occurrence: CA)
  Receive Date: 20230609
  Receipt Date: 20230609
  Transmission Date: 20230722
  Serious: Yes (Other)
  Sender: FDA-Public Use
  Company Number: CA-CELLTRION INC.-2023CA011618

PATIENT

DRUGS (4)
  1. YUFLYMA [Suspect]
     Active Substance: ADALIMUMAB-AATY
     Indication: Hidradenitis
     Dosage: 40 MG, 1/WEEK
     Route: 058
     Dates: start: 20230429
  2. VYVANSE [Concomitant]
     Active Substance: LISDEXAMFETAMINE DIMESYLATE
     Dosage: OD
  3. IVABRADINE [Concomitant]
     Active Substance: IVABRADINE
     Dosage: UNK, BID
  4. LURASIDONE [Concomitant]
     Active Substance: LURASIDONE
     Dosage: OD

REACTIONS (2)
  - Pilonidal disease [Not Recovered/Not Resolved]
  - Condition aggravated [Not Recovered/Not Resolved]
